FAERS Safety Report 5933411-3 (Version None)
Quarter: 2008Q4

REPORT INFORMATION
  Report Type: 
  Country: None (occurrence: None)
  Receive Date: 20081023
  Receipt Date: 20081010
  Transmission Date: 20090506
  Serious: Yes (Hospitalization)
  Sender: FDA-Public Use
  Company Number: US024856

PATIENT
  Age: 41 Year
  Sex: Male
  Weight: 86.1834 kg

DRUGS (6)
  1. PROVIGIL [Suspect]
     Indication: FATIGUE
     Dosage: 200 MG BID ORAL
     Route: 048
     Dates: start: 20000101, end: 20080701
  2. PROVIGIL [Suspect]
     Indication: SLEEP APNOEA SYNDROME
     Dosage: 200 MG BID ORAL
     Route: 048
     Dates: start: 20000101, end: 20080701
  3. EFFEXOR [Concomitant]
  4. VALIUM [Concomitant]
  5. RISPERDAL [Concomitant]
  6. LEVOTHYROXINE SODIUM [Concomitant]

REACTIONS (5)
  - ASTHENIA [None]
  - CONVULSION [None]
  - DRUG EFFECT DECREASED [None]
  - SOMNOLENCE [None]
  - UNRESPONSIVE TO STIMULI [None]
